FAERS Safety Report 8996816 (Version 1)
Quarter: 2012Q4

REPORT INFORMATION
  Report Type: Spontaneous
  Country: US (occurrence: None)
  Receive Date: 20121228
  Receipt Date: 20121228
  Transmission Date: 20130627
  Serious: No
  Sender: FDA-Public Use
  Company Number: None

PATIENT
  Age: 73 Year
  Sex: Female
  Weight: 104.33 kg

DRUGS (1)
  1. FAMCICLOVIR [Suspect]
     Dosage: ONE TABLET  3 TIMES DAY MOUTH
     Route: 048
     Dates: start: 20121101, end: 20121108

REACTIONS (3)
  - Asthenia [None]
  - Body temperature increased [None]
  - Gait disturbance [None]
